FAERS Safety Report 24113443 (Version 4)
Quarter: 2025Q1

REPORT INFORMATION
  Report Type: Spontaneous
  Country: CA (occurrence: CA)
  Receive Date: 20240720
  Receipt Date: 20250319
  Transmission Date: 20250409
  Serious: Yes (Death, Hospitalization, Other)
  Sender: NOVARTIS
  Company Number: CA-002147023-NVSC2024CA146466

PATIENT
  Age: 69 Year
  Sex: Female

DRUGS (11)
  1. AFINITOR [Suspect]
     Active Substance: EVEROLIMUS
     Indication: Product used for unknown indication
     Route: 065
  2. LANREOTIDE ACETATE [Suspect]
     Active Substance: LANREOTIDE ACETATE
     Indication: Gastroenteropancreatic neuroendocrine tumour disease
     Dosage: 120 MG, Q4W (1 EVERY 4 WEEKS)
     Route: 058
  3. LANREOTIDE ACETATE [Suspect]
     Active Substance: LANREOTIDE ACETATE
     Route: 058
  4. LANREOTIDE ACETATE [Suspect]
     Active Substance: LANREOTIDE ACETATE
     Indication: Gastroenteropancreatic neuroendocrine tumour disease
     Route: 058
  5. IMODIUM [Concomitant]
     Active Substance: LOPERAMIDE HYDROCHLORIDE
     Indication: Product used for unknown indication
     Route: 065
  6. PROLIA [Concomitant]
     Active Substance: DENOSUMAB
     Indication: Product used for unknown indication
     Route: 058
  7. ASPIRIN [Concomitant]
     Active Substance: ASPIRIN
     Indication: Product used for unknown indication
     Route: 065
  8. RABEPRAZOLE [Concomitant]
     Active Substance: RABEPRAZOLE
     Indication: Product used for unknown indication
     Route: 065
  9. ROSUVASTATIN [Concomitant]
     Active Substance: ROSUVASTATIN
     Indication: Product used for unknown indication
     Route: 058
  10. DULOXETINE [Concomitant]
     Active Substance: DULOXETINE
     Indication: Product used for unknown indication
     Dosage: 30 MG, QD (1 EVERY 1 DAYS)
     Route: 048
  11. FUROSEMIDE [Concomitant]
     Active Substance: FUROSEMIDE
     Indication: Product used for unknown indication
     Dosage: 40 MG, QD (1 EVERY 1 DAYS)
     Route: 048

REACTIONS (52)
  - Death [Fatal]
  - Adverse drug reaction [Fatal]
  - Anxiety [Fatal]
  - Anxiety [Fatal]
  - Arthralgia [Fatal]
  - Arthralgia [Fatal]
  - Back pain [Fatal]
  - Blood pressure decreased [Fatal]
  - Bone pain [Fatal]
  - Cough [Fatal]
  - Contusion [Fatal]
  - Diarrhoea [Fatal]
  - Diarrhoea [Fatal]
  - Dizziness [Fatal]
  - Dizziness [Fatal]
  - Dyspnoea [Fatal]
  - Feeling hot [Fatal]
  - Fall [Fatal]
  - Face injury [Fatal]
  - Gait disturbance [Fatal]
  - Haemoglobin decreased [Fatal]
  - Headache [Fatal]
  - Incorrect drug administration rate [Fatal]
  - Infection [Fatal]
  - Injection site pain [Fatal]
  - Lipoedema [Fatal]
  - Lymphoedema [Fatal]
  - Malaise [Fatal]
  - Malignant neoplasm progression [Fatal]
  - Metastases to bone [Fatal]
  - Metastases to heart [Fatal]
  - Nasal congestion [Fatal]
  - Nasopharyngitis [Fatal]
  - Oedema peripheral [Fatal]
  - Neuralgia [Fatal]
  - Oropharyngeal pain [Fatal]
  - Pain in extremity [Fatal]
  - Palpitations [Fatal]
  - Palpitations [Fatal]
  - Pollakiuria [Fatal]
  - Polydipsia [Fatal]
  - Product administered at inappropriate site [Fatal]
  - Pyrexia [Fatal]
  - Rash [Fatal]
  - Skin tightness [Fatal]
  - Skin tightness [Fatal]
  - Throat irritation [Fatal]
  - Urinary tract infection [Fatal]
  - Vomiting [Fatal]
  - Weight decreased [Fatal]
  - Deep vein thrombosis [Fatal]
  - Off label use [Fatal]
